FAERS Safety Report 19662590 (Version 1)
Quarter: 2021Q3

REPORT INFORMATION
  Report Type: Spontaneous
  Country: DE (occurrence: DE)
  Receive Date: 20210806
  Receipt Date: 20210806
  Transmission Date: 20211014
  Serious: Yes (Other)
  Sender: FDA-Public Use
  Company Number: DE-CELLTRION INC.-2021DE010312

PATIENT

DRUGS (1)
  1. RITUXIMAB (UNKNOWN) [Suspect]
     Active Substance: RITUXIMAB
     Indication: POST TRANSPLANT LYMPHOPROLIFERATIVE DISORDER
     Dosage: 375 MG/M2, QW (SYSTEMICALLY)
     Route: 042

REACTIONS (3)
  - Pneumocystis jirovecii infection [Unknown]
  - Product use in unapproved indication [Unknown]
  - Off label use [Unknown]
